FAERS Safety Report 9242976 (Version 1)
Quarter: 2013Q2

REPORT INFORMATION
  Report Type: Spontaneous
  Country: US (occurrence: US)
  Receive Date: 20130420
  Receipt Date: 20130420
  Transmission Date: 20140414
  Serious: No
  Sender: FDA-Public Use
  Company Number: US-ASTRAZENECA-2013SE19479

PATIENT
  Age: 61 Year
  Sex: Female
  Weight: 97.5 kg

DRUGS (1)
  1. NEXIUM [Suspect]
     Indication: GASTROOESOPHAGEAL REFLUX DISEASE
     Route: 048
     Dates: start: 2009

REACTIONS (6)
  - Weight decreased [Unknown]
  - Malaise [Unknown]
  - Alopecia [Unknown]
  - Constipation [Unknown]
  - Drug dose omission [Unknown]
  - Off label use [Unknown]
